FAERS Safety Report 17867537 (Version 6)
Quarter: 2022Q1

REPORT INFORMATION
  Report Type: Report from Study
  Country: DE (occurrence: None)
  Receive Date: 20200605
  Receipt Date: 20220224
  Transmission Date: 20220423
  Serious: Yes (Hospitalization)
  Sender: FDA-Public Use
  Company Number: DE-EISAI MEDICAL RESEARCH-EC-2020-075558

PATIENT
  Age: 84 Year
  Sex: Female
  Weight: 71 kg

DRUGS (4)
  1. LENVATINIB [Suspect]
     Active Substance: LENVATINIB
     Indication: Hepatocellular carcinoma
     Dosage: DOSE AND FREQUENCY UNKNOWN
     Route: 048
     Dates: start: 20200417, end: 20200517
  2. LENVATINIB [Suspect]
     Active Substance: LENVATINIB
     Dosage: DOSE AND FREQUENCY UNKNOWN
     Route: 048
     Dates: start: 202006, end: 20200630
  3. NIVOLUMAB [Suspect]
     Active Substance: NIVOLUMAB
     Indication: Hepatocellular carcinoma
     Dosage: DOSE AND FREQUENCY UNKNOWN
     Route: 065
     Dates: start: 20200417, end: 20200504
  4. NIVOLUMAB [Suspect]
     Active Substance: NIVOLUMAB
     Dosage: DOSE AND FREQUENCY UNKNOWN
     Route: 065
     Dates: start: 202006, end: 20200629

REACTIONS (3)
  - Cardiac failure [Recovered/Resolved]
  - Dehydration [Recovered/Resolved]
  - Anaemia [Recovered/Resolved]

NARRATIVE: CASE EVENT DATE: 20200603
